FAERS Safety Report 8371653-0 (Version None)
Quarter: 2012Q2

REPORT INFORMATION
  Report Type: 
  Country: None (occurrence: None)
  Receive Date: 20120518
  Receipt Date: 20120418
  Transmission Date: 20120825
  Serious: No
  Sender: FDA-Public Use
  Company Number: US-ASTRAZENECA-2012SE25550

PATIENT
  Age: 27 Year
  Sex: Female
  Weight: 54.4 kg

DRUGS (3)
  1. CRESTOR [Suspect]
     Indication: BLOOD CHOLESTEROL ABNORMAL
     Route: 048
     Dates: start: 20120306
  2. FISH OIL [Concomitant]
  3. CALCIUM [Concomitant]
     Indication: BONE DISORDER

REACTIONS (5)
  - PAIN [None]
  - BLOOD GLUCOSE ABNORMAL [None]
  - MALAISE [None]
  - ASTHENIA [None]
  - FATIGUE [None]
